FAERS Safety Report 16204544 (Version 1)
Quarter: 2019Q2

REPORT INFORMATION
  Report Type: Spontaneous
  Country: US (occurrence: US)
  Receive Date: 20190416
  Receipt Date: 20190416
  Transmission Date: 20190711
  Serious: Yes (Other)
  Sender: FDA-Public Use
  Company Number: US-PFIZER INC-2019146703

PATIENT
  Age: 33 Year
  Sex: Female

DRUGS (10)
  1. NODOZ [Concomitant]
     Active Substance: CAFFEINE
     Indication: COUGH
     Dosage: 600 MG, DAILY (ADDING TO HER DM)
  2. DEXTROMETHORPHAN [DEXTROMETHORPHAN HYDROBROMIDE] [Concomitant]
     Indication: COUGH
     Dosage: UNK (POWDER)
  3. TUSSIN DM [Concomitant]
     Active Substance: DEXTROMETHORPHAN HYDROBROMIDE\GUAIFENESIN
     Indication: NASOPHARYNGITIS
     Dosage: UNK (CONSUMED ABOUT 3 OUNCES, ON TWO SEPARATE OCCASIONS)
     Route: 048
  4. TUSSIN DM [Concomitant]
     Active Substance: DEXTROMETHORPHAN HYDROBROMIDE\GUAIFENESIN
     Dosage: UNK (FIVE TIMES PER DAY, (ROUGHLY 40 OUNCES OF COUGH SYRUP) (SINGLE DAY USE)
     Route: 048
  5. ROBITUSSIN (GUAIFENESIN) [Suspect]
     Active Substance: GUAIFENESIN
     Indication: COUGH
     Dosage: UNK
  6. TUSSIN DM [Concomitant]
     Active Substance: DEXTROMETHORPHAN HYDROBROMIDE\GUAIFENESIN
     Indication: COUGH
     Dosage: UNK, DAILY (PROGRESSED TO DAILY USE)
     Route: 048
  7. TUSSIN DM [Concomitant]
     Active Substance: DEXTROMETHORPHAN HYDROBROMIDE\GUAIFENESIN
     Dosage: UNK, 3X/DAY (8 OUNCES OF LIQUID COUGH SYRUP THREE TIMES PER DAY (24 OUNCES PER DAY)
     Route: 048
  8. TUSSIN DM [Concomitant]
     Active Substance: DEXTROMETHORPHAN HYDROBROMIDE\GUAIFENESIN
     Dosage: UNK (THEN SEVERAL TIMES PER DAY-NEEDING TO USE MORE)
     Route: 048
  9. ROBITUSSIN (GUAIFENESIN) [Concomitant]
     Active Substance: GUAIFENESIN
     Indication: COUGH
     Dosage: UNK (GEL TABS)
  10. DEXTROMETHORPHAN [DEXTROMETHORPHAN HYDROBROMIDE] [Concomitant]
     Indication: COUGH
     Dosage: UNK (REGULAR DM SYRUP)

REACTIONS (2)
  - Drug abuse [Unknown]
  - Toxicity to various agents [Unknown]
